FAERS Safety Report 19710998 (Version 2)
Quarter: 2021Q3

REPORT INFORMATION
  Report Type: Spontaneous
  Country: IT (occurrence: IT)
  Receive Date: 20210817
  Receipt Date: 20210826
  Transmission Date: 20211014
  Serious: Yes (Hospitalization)
  Sender: FDA-Public Use
  Company Number: IT-JNJFOC-20210816301

PATIENT
  Age: 53 Year
  Sex: Female

DRUGS (3)
  1. AKINETON [Concomitant]
     Active Substance: BIPERIDEN HYDROCHLORIDE
     Route: 048
  2. SERENASE (HALOPERIDOL) [Suspect]
     Active Substance: HALOPERIDOL
     Indication: PROPHYLAXIS AGAINST PSYCHOMOTOR AGITATION
     Dosage: (2MG / ML)
     Route: 048
     Dates: start: 20210731, end: 20210801
  3. LITHIUM. [Suspect]
     Active Substance: LITHIUM
     Indication: PROPHYLAXIS AGAINST PSYCHOMOTOR AGITATION
     Route: 048
     Dates: start: 20210731, end: 20210801

REACTIONS (11)
  - Antipsychotic drug level increased [Not Recovered/Not Resolved]
  - Red blood cell sedimentation rate increased [Not Recovered/Not Resolved]
  - Transaminases increased [Not Recovered/Not Resolved]
  - Drug abuse [Recovered/Resolved]
  - Altered state of consciousness [Not Recovered/Not Resolved]
  - Tremor [Not Recovered/Not Resolved]
  - Pancreatitis [Not Recovered/Not Resolved]
  - Blood creatinine increased [Not Recovered/Not Resolved]
  - Sedation [Not Recovered/Not Resolved]
  - Hypotension [Not Recovered/Not Resolved]
  - Nutritional condition abnormal [Not Recovered/Not Resolved]

NARRATIVE: CASE EVENT DATE: 20210731
